FAERS Safety Report 23848895 (Version 1)
Quarter: 2024Q2

REPORT INFORMATION
  Report Type: Spontaneous
  Country: US (occurrence: None)
  Receive Date: 20240511
  Receipt Date: 20240511
  Transmission Date: 20240716
  Serious: Yes (Hospitalization)
  Sender: FDA-Public Use
  Company Number: None

PATIENT
  Age: 81 Year
  Sex: Male
  Weight: 133 kg

DRUGS (2)
  1. LORAZEPAM [Suspect]
     Active Substance: LORAZEPAM
     Indication: Delirium
     Dosage: FREQUENCY : ONCE;?
     Route: 042
     Dates: start: 20210121, end: 20210121
  2. OLANZAPINE [Suspect]
     Active Substance: OLANZAPINE
     Indication: Drug therapy
     Dosage: FREQUENCY : ONCE;?
     Route: 048
     Dates: start: 20210121, end: 20210121

REACTIONS (6)
  - Dizziness [None]
  - Somnolence [None]
  - Sedation [None]
  - Unresponsive to stimuli [None]
  - Agitation [None]
  - Aggression [None]

NARRATIVE: CASE EVENT DATE: 20210121
